FAERS Safety Report 9869297 (Version 1)
Quarter: 2014Q1

REPORT INFORMATION
  Report Type: Spontaneous
  Country: FR (occurrence: FR)
  Receive Date: 20140205
  Receipt Date: 20140205
  Transmission Date: 20141002
  Serious: Yes (Other)
  Sender: FDA-Public Use
  Company Number: FR-ROCHE-1343500

PATIENT
  Age: 47 Year
  Sex: Female

DRUGS (6)
  1. ROACTEMRA [Suspect]
     Indication: RHEUMATOID ARTHRITIS
     Route: 042
     Dates: start: 2013
  2. ROACTEMRA [Suspect]
     Route: 065
     Dates: start: 20131024
  3. DAFALGAN [Concomitant]
  4. LYSANXIA [Concomitant]
  5. SEROPLEX [Concomitant]
     Route: 065
  6. INEXIUM [Concomitant]
     Route: 065

REACTIONS (6)
  - Urinary tract infection [Unknown]
  - Headache [Unknown]
  - Nausea [Unknown]
  - Nervousness [Unknown]
  - Diarrhoea [Unknown]
  - Constipation [Unknown]
